FAERS Safety Report 22055747 (Version 1)
Quarter: 2023Q1

REPORT INFORMATION
  Report Type: Other
  Country: DE (occurrence: None)
  Receive Date: 20230302
  Receipt Date: 20230302
  Transmission Date: 20230418
  Serious: Yes (Death, Hospitalization, Other)
  Sender: FDA-Public Use
  Company Number: DE-Navinta LLC-000399

PATIENT
  Age: 11 Year
  Sex: Female

DRUGS (4)
  1. RIBAVIRIN [Suspect]
     Active Substance: RIBAVIRIN
     Indication: Borna virus infection
     Dosage: LOADING DOSE 30 MG/KG/DAY ON DAY 2 AND FOLLOWING DAYS: 64 MG/KG/DAY IN 4 DOSES
  2. FAVIPIRAVIR [Suspect]
     Active Substance: FAVIPIRAVIR
     Indication: Borna virus infection
     Dosage: DAY 1: 1600-1600-800 MG; DAY 2 AND FOLLOWING DAYS: 800 MG BID
  3. ACYCLOVIR [Concomitant]
     Active Substance: ACYCLOVIR
     Indication: Infection
  4. DOXYCYCLINE [Concomitant]
     Active Substance: DOXYCYCLINE
     Indication: Infection

REACTIONS (3)
  - Intracranial pressure increased [Fatal]
  - Brain herniation [Fatal]
  - Brain oedema [Fatal]
